FAERS Safety Report 23510910 (Version 2)
Quarter: 2024Q1

REPORT INFORMATION
  Report Type: Spontaneous
  Country: CN (occurrence: CN)
  Receive Date: 20240212
  Receipt Date: 20240215
  Transmission Date: 20240410
  Serious: Yes (Hospitalization, Other)
  Sender: FDA-Public Use
  Company Number: CN-HALEON-CNCH2024APC006627

PATIENT

DRUGS (2)
  1. VOLTAREN [Suspect]
     Active Substance: DICLOFENAC SODIUM
     Indication: Pain in extremity
     Dosage: 75 MG, QD
     Route: 048
     Dates: start: 20240110, end: 20240119
  2. VOLTAREN [Suspect]
     Active Substance: DICLOFENAC SODIUM
     Indication: Toothache

REACTIONS (10)
  - Upper gastrointestinal haemorrhage [Recovering/Resolving]
  - Arteriosclerosis coronary artery [Recovering/Resolving]
  - Blood loss anaemia [Recovering/Resolving]
  - Melaena [Recovering/Resolving]
  - Haematemesis [Recovering/Resolving]
  - Anaemia [Recovering/Resolving]
  - Hypertension [Recovering/Resolving]
  - Constipation [Recovering/Resolving]
  - Hyperlipidaemia [Recovering/Resolving]
  - Toothache [Recovering/Resolving]

NARRATIVE: CASE EVENT DATE: 20240119
